FAERS Safety Report 14586321 (Version 2)
Quarter: 2018Q2

REPORT INFORMATION
  Report Type: Spontaneous
  Country: US (occurrence: US)
  Receive Date: 20180301
  Receipt Date: 20180521
  Transmission Date: 20180711
  Serious: Yes (Hospitalization, Other)
  Sender: FDA-Public Use
  Company Number: US-ELI_LILLY_AND_COMPANY-US201802010643

PATIENT
  Age: 46 Year
  Sex: Male
  Weight: 82 kg

DRUGS (5)
  1. METOPROLOL. [Concomitant]
     Active Substance: METOPROLOL
     Indication: BLOOD PRESSURE ABNORMAL
     Dosage: 25 MG, UNKNOWN
     Route: 065
     Dates: start: 201210
  2. ROSUVASTATIN. [Concomitant]
     Active Substance: ROSUVASTATIN
     Indication: BLOOD CHOLESTEROL ABNORMAL
     Dosage: 5 MG, UNKNOWN
     Route: 065
     Dates: start: 201210
  3. AXIRON [Suspect]
     Active Substance: TESTOSTERONE
     Dosage: UNK, DAILY
     Route: 065
     Dates: start: 20130112, end: 201403
  4. AXIRON [Suspect]
     Active Substance: TESTOSTERONE
     Indication: ANDROGEN REPLACEMENT THERAPY
     Dosage: UNK UNK, DAILY
     Route: 065
     Dates: start: 20121016, end: 20121019
  5. ASPIRIN                            /00002701/ [Concomitant]
     Active Substance: ASPIRIN
     Indication: BLOOD DISORDER
     Dosage: 81 MG, UNKNOWN
     Route: 065
     Dates: start: 201210

REACTIONS (1)
  - Myocardial infarction [Unknown]

NARRATIVE: CASE EVENT DATE: 20121019
